FAERS Safety Report 6556475-5 (Version None)
Quarter: 2010Q1

REPORT INFORMATION
  Report Type: 
  Country: None (occurrence: None)
  Receive Date: 20100128
  Receipt Date: 20100118
  Transmission Date: 20100710
  Serious: Yes (Other)
  Sender: FDA-Public Use
  Company Number: DK-MERCK-1001DNK00003

PATIENT
  Sex: Female

DRUGS (5)
  1. SIMVASTATIN [Suspect]
     Indication: BLOOD CHOLESTEROL
     Route: 065
  2. PERPHENAZINE [Suspect]
     Indication: PSYCHOTIC DISORDER
     Dosage: 8 MILLIGRAMS
     Route: 048
  3. QUETIAPINE FUMARATE [Suspect]
     Indication: PSYCHOTIC DISORDER
     Dosage: 100 MILLIGRAMS
     Route: 048
  4. PROCYCLIDINE HYDROCHLORIDE [Suspect]
     Indication: ADVERSE EVENT
     Route: 048
  5. PERPHENAZINE [Suspect]
     Route: 051

REACTIONS (9)
  - DIZZINESS [None]
  - FATIGUE [None]
  - HEART RATE IRREGULAR [None]
  - LISTLESS [None]
  - MUSCLE SPASMS [None]
  - OVERDOSE [None]
  - STRESS [None]
  - VISUAL ACUITY REDUCED [None]
  - WEIGHT INCREASED [None]
